FAERS Safety Report 6447958-7 (Version None)
Quarter: 2009Q4

REPORT INFORMATION
  Report Type: 
  Country: None (occurrence: None)
  Receive Date: 20091116
  Receipt Date: 20091030
  Transmission Date: 20100525
  Serious: Yes (Hospitalization)
  Sender: FDA-Public Use
  Company Number: 2009003329

PATIENT
  Age: 66 Year
  Sex: Male
  Weight: 51.45 kg

DRUGS (8)
  1. ERLOTINIB HYDROCHLORIDE [Suspect]
     Indication: LUNG ADENOCARCINOMA
     Dosage: 150 MG, QD, ORAL
     Route: 048
     Dates: start: 20090128, end: 20090419
  2. LOXONIN (LOXOPROFEN SODIUM) [Concomitant]
  3. MUCOSTA (REBAMIPIDE) [Concomitant]
  4. MIYARI BACTERIA     (MIYARI BACTERIA) [Concomitant]
  5. NAUZELIN (DOMPERIDONE) [Concomitant]
  6. FAMOTIDINE [Concomitant]
  7. DIAZEPAM [Concomitant]
  8. PURSENNID (SENNA LEAF) [Concomitant]

REACTIONS (3)
  - ANAEMIA [None]
  - LUNG ADENOCARCINOMA [None]
  - MALIGNANT NEOPLASM PROGRESSION [None]
